FAERS Safety Report 5158643-6 (Version None)
Quarter: 2006Q4

REPORT INFORMATION
  Report Type: 
  Country: None (occurrence: None)
  Receive Date: 20061117
  Receipt Date: 20061108
  Transmission Date: 20070319
  Serious: Yes (Hospitalization)
  Sender: FDA-Public Use
  Company Number: FRWYE041628FEB03

PATIENT
  Age: 38 Year
  Sex: Male

DRUGS (5)
  1. TACROLIMUS, CONTROL FOR SIROLIMUS(TACROLIMUS, CONTROL FOR SIROLIMUS, [Suspect]
     Indication: PROPHYLAXIS AGAINST TRANSPLANT REJECTION
     Dosage: 11 MG 1X PER 1 DAY; ORAL, 10 MG 1X PER 1 DAY; ORAL, 11 MG 1X PER 1 DAY; ORAL
     Route: 048
     Dates: start: 20030208, end: 20030209
  2. TACROLIMUS, CONTROL FOR SIROLIMUS(TACROLIMUS, CONTROL FOR SIROLIMUS, [Suspect]
     Indication: PROPHYLAXIS AGAINST TRANSPLANT REJECTION
     Dosage: 11 MG 1X PER 1 DAY; ORAL, 10 MG 1X PER 1 DAY; ORAL, 11 MG 1X PER 1 DAY; ORAL
     Route: 048
     Dates: start: 20030212, end: 20030222
  3. TACROLIMUS, CONTROL FOR SIROLIMUS(TACROLIMUS, CONTROL FOR SIROLIMUS, [Suspect]
     Indication: PROPHYLAXIS AGAINST TRANSPLANT REJECTION
     Dosage: 11 MG 1X PER 1 DAY; ORAL, 10 MG 1X PER 1 DAY; ORAL, 11 MG 1X PER 1 DAY; ORAL
     Route: 048
     Dates: start: 20030223, end: 20030227
  4. CELLCEPT [Concomitant]
  5. MEDROL [Concomitant]

REACTIONS (4)
  - KIDNEY TRANSPLANT REJECTION [None]
  - PYREXIA [None]
  - RENAL IMPAIRMENT [None]
  - THROMBOTIC MICROANGIOPATHY [None]
